FAERS Safety Report 7503931-9 (Version None)
Quarter: 2011Q2

REPORT INFORMATION
  Report Type: 
  Country: None (occurrence: None)
  Receive Date: 20110518
  Receipt Date: 20110503
  Transmission Date: 20111010
  Serious: Yes (Life-Threatening)
  Sender: FDA-Public Use
  Company Number: IDA-00538

PATIENT
  Sex: Female

DRUGS (3)
  1. PROPRANOLOL [Suspect]
     Dosage: 0.5 MG/KG (2.5 MG), ORAL
     Route: 048
  2. ADENOSINE [Concomitant]
  3. VERAPAMIL [Suspect]

REACTIONS (17)
  - HYPERKALAEMIA [None]
  - STENOTROPHOMONAS INFECTION [None]
  - BLOOD CREATININE INCREASED [None]
  - HYPOXIA [None]
  - DRUG INTERACTION [None]
  - ANURIA [None]
  - BRADYCARDIA [None]
  - CIRCULATORY COLLAPSE [None]
  - VENTRICULAR DYSFUNCTION [None]
  - DILATATION VENTRICULAR [None]
  - VENTRICULAR TACHYCARDIA [None]
  - METABOLIC ACIDOSIS [None]
  - SUPRAVENTRICULAR TACHYCARDIA [None]
  - PNEUMONIA [None]
  - PERITONEAL DIALYSIS [None]
  - HYPOTENSION [None]
  - ATRIAL FIBRILLATION [None]
